FAERS Safety Report 8153607-2 (Version None)
Quarter: 2012Q1

REPORT INFORMATION
  Report Type: 
  Country: None (occurrence: None)
  Receive Date: 20120216
  Receipt Date: 20120216
  Transmission Date: 20120608
  Serious: Yes (Hospitalization)
  Sender: FDA-Public Use
  Company Number: None

PATIENT
  Age: 46 Year
  Sex: Female
  Weight: 101.6965 kg

DRUGS (2)
  1. CLOZAPINE [Suspect]
     Indication: SCHIZOPHRENIA
     Dosage: 100MG ONCE DAILY ORAL
     Route: 048
     Dates: start: 20120120, end: 20120128
  2. CLOZAPINE [Suspect]
     Indication: SCHIZOPHRENIA
     Dosage: 50MG ONCE DAILY ORAL
     Route: 048
     Dates: start: 20120113, end: 20120121

REACTIONS (3)
  - RASH MACULAR [None]
  - ERYTHEMA [None]
  - PRURITUS [None]
